FAERS Safety Report 7206767-1 (Version None)
Quarter: 2010Q4

REPORT INFORMATION
  Report Type: 
  Country: None (occurrence: None)
  Receive Date: 20101221
  Receipt Date: 20101209
  Transmission Date: 20110411
  Serious: Yes (Hospitalization)
  Sender: FDA-Public Use
  Company Number: 2010-4355

PATIENT
  Age: 62 Year
  Sex: Male

DRUGS (1)
  1. APO-GO PFS (APOMORPHINE HYDROCHLORIDE) [Suspect]
     Indication: PRODUCT USED FOR UNKNOWN INDICATION
     Dosage: 30 ML (2 ML PER HOUR FROM 7AM TO 10 PM), SUBCUTANEOUS
     Route: 058
     Dates: start: 20081031

REACTIONS (2)
  - GASTROINTESTINAL INFLAMMATION [None]
  - NODULE [None]
